FAERS Safety Report 6362294-5 (Version None)
Quarter: 2009Q3

REPORT INFORMATION
  Report Type: 
  Country: None (occurrence: None)
  Receive Date: 20090918
  Receipt Date: 20090807
  Transmission Date: 20100115
  Serious: No
  Sender: FDA-Public Use
  Company Number: US-ABBOTT-09P-163-0590422-00

PATIENT
  Sex: Female
  Weight: 57.658 kg

DRUGS (11)
  1. HUMIRA [Suspect]
     Indication: CROHN'S DISEASE
     Dosage: WILL CONTINUE TO 80MG ON DAY 15 AND THEN 40MG EOW
     Route: 058
     Dates: start: 20090806, end: 20090806
  2. METOPROLOL TARTRATE [Concomitant]
     Indication: HYPERTENSION
  3. LISINOPRIL [Concomitant]
     Indication: HYPERTENSION
  4. LEXAPRO [Concomitant]
     Indication: DRUG USE FOR UNKNOWN INDICATION
  5. VITAMIN D [Concomitant]
     Indication: VITAMIN SUPPLEMENTATION
  6. AMIODARONE HCL [Concomitant]
     Indication: HEART RATE IRREGULAR
  7. LOMOTIL [Concomitant]
     Indication: CROHN'S DISEASE
  8. FORTICAL [Concomitant]
     Indication: MINERAL SUPPLEMENTATION
     Dosage: SPRAY DAILY
     Route: 045
  9. VITAMIN B-12 [Concomitant]
     Indication: CROHN'S DISEASE
  10. CALCIUM W/VITAMIN D [Concomitant]
     Indication: MINERAL SUPPLEMENTATION
  11. NEXIUM [Concomitant]
     Indication: GASTROOESOPHAGEAL REFLUX DISEASE

REACTIONS (3)
  - ABDOMINAL PAIN UPPER [None]
  - DIARRHOEA [None]
  - DYSPEPSIA [None]
